FAERS Safety Report 7388621-8 (Version None)
Quarter: 2011Q2

REPORT INFORMATION
  Report Type: 
  Country: None (occurrence: None)
  Receive Date: 20110401
  Receipt Date: 20110321
  Transmission Date: 20111010
  Serious: Yes (Death, Other)
  Sender: FDA-Public Use
  Company Number: TR-CELGENEUS-161-CCAZA-11032333

PATIENT

DRUGS (3)
  1. AZACITIDINE [Suspect]
  2. AZACITIDINE [Suspect]
  3. AZACITIDINE [Suspect]
     Dosage: 75 OR 50 MG/M2/DAY
     Route: 051

REACTIONS (9)
  - COMPLICATIONS OF TRANSPLANT SURGERY [None]
  - MULTI-ORGAN FAILURE [None]
  - MYELODYSPLASTIC SYNDROME [None]
  - ACUTE MYELOID LEUKAEMIA [None]
  - DRUG INEFFECTIVE [None]
  - MYELODYSPLASTIC SYNDROME TRANSFORMATION [None]
  - SUBILEUS [None]
  - FEBRILE NEUTROPENIA [None]
  - PNEUMONIA FUNGAL [None]
